FAERS Safety Report 12572098 (Version 2)
Quarter: 2017Q3

REPORT INFORMATION
  Report Type: Report from Study
  Country: CA (occurrence: CA)
  Receive Date: 20160719
  Receipt Date: 20170717
  Transmission Date: 20171127
  Serious: Yes (Other)
  Sender: FDA-Public Use
  Company Number: PHHY2014CA071176

PATIENT
  Age: 84 Year
  Sex: Female

DRUGS (8)
  1. SALINE [Concomitant]
     Active Substance: SODIUM CHLORIDE
     Dosage: 20 ML, BEFORE INFUSION
     Route: 065
  2. VITAMIN D [Concomitant]
     Active Substance: CHOLECALCIFEROL
     Indication: PRODUCT USED FOR UNKNOWN INDICATION
     Dosage: 400 IU, DAILY FOR 21 DAYS
     Route: 048
  3. ZOMETA [Suspect]
     Active Substance: ZOLEDRONIC ACID
     Dosage: 3.5 MG, EVERY 3 MONTHS
     Route: 042
     Dates: start: 20160105
  4. ZOMETA [Suspect]
     Active Substance: ZOLEDRONIC ACID
     Dosage: 2 MG, EVERY 3 MONTHS
     Route: 042
     Dates: start: 20161013
  5. CALCIUM CARBONATE. [Concomitant]
     Active Substance: CALCIUM CARBONATE
     Indication: PRODUCT USED FOR UNKNOWN INDICATION
     Dosage: 1250 MG, QD FOR 21 DAYS
     Route: 048
  6. ZOMETA [Suspect]
     Active Substance: ZOLEDRONIC ACID
     Dosage: 3.5 MG, EVERY 8 WEEKS
     Route: 042
     Dates: start: 20141113
  7. SALINE [Concomitant]
     Active Substance: SODIUM CHLORIDE
     Indication: PRODUCT USED FOR UNKNOWN INDICATION
     Dosage: UNK, BEFORE INFUSION
     Route: 065
  8. ZOMETA [Suspect]
     Active Substance: ZOLEDRONIC ACID
     Indication: BREAST CANCER
     Dosage: 3.5 MG, QMO ( EVERY 4 WEEKS)
     Route: 042
     Dates: start: 20140604

REACTIONS (11)
  - Vein disorder [Unknown]
  - Lymphoedema [Unknown]
  - Renal impairment [Unknown]
  - Hypotension [Unknown]
  - Poor venous access [Unknown]
  - Body temperature decreased [Unknown]
  - Heart rate irregular [Unknown]
  - Thrombosis [Unknown]
  - Peripheral swelling [Unknown]
  - Blood pressure systolic increased [Unknown]
  - Anxiety [Unknown]

NARRATIVE: CASE EVENT DATE: 20140604
